FAERS Safety Report 12798944 (Version 1)
Quarter: 2016Q3

REPORT INFORMATION
  Report Type: Spontaneous
  Country: US (occurrence: US)
  Receive Date: 20160909
  Receipt Date: 20160909
  Transmission Date: 20161109
  Serious: Yes (Other)
  Sender: FDA-Public Use
  Company Number: None

PATIENT
  Age: 58 Year
  Sex: Male
  Weight: 100 kg

DRUGS (2)
  1. CENTRUM 50 PLUS [Concomitant]
  2. HEAD AND SHOULDERS [Suspect]
     Active Substance: PYRITHIONE ZINC
     Indication: DANDRUFF
     Dates: start: 20060101, end: 20160327

REACTIONS (2)
  - Conjunctival haemorrhage [None]
  - Increased tendency to bruise [None]

NARRATIVE: CASE EVENT DATE: 20160909
